FAERS Safety Report 6251950-5 (Version None)
Quarter: 2009Q2

REPORT INFORMATION
  Report Type: 
  Country: None (occurrence: None)
  Receive Date: 20090630
  Receipt Date: 20090622
  Transmission Date: 20091009
  Serious: Yes (Hospitalization)
  Sender: FDA-Public Use
  Company Number: DE-ABBOTT-09P-062-0581618-00

PATIENT
  Sex: Female

DRUGS (4)
  1. HUMIRA [Suspect]
     Indication: POLYARTHRITIS
     Dosage: UNKNOWN
     Route: 058
     Dates: start: 20050101
  2. DOCITON [Concomitant]
     Indication: VENTRICULAR EXTRASYSTOLES
     Route: 048
  3. CORTISON [Concomitant]
     Indication: DRUG USE FOR UNKNOWN INDICATION
     Route: 048
  4. ATENOLOL [Concomitant]
     Indication: DRUG USE FOR UNKNOWN INDICATION

REACTIONS (3)
  - ELECTROCARDIOGRAM QT INTERVAL ABNORMAL [None]
  - PALPITATIONS [None]
  - VENTRICULAR TACHYCARDIA [None]
